FAERS Safety Report 8244715-6 (Version None)
Quarter: 2012Q1

REPORT INFORMATION
  Report Type: 
  Country: None (occurrence: None)
  Receive Date: 20120329
  Receipt Date: 20110210
  Transmission Date: 20120608
  Serious: No
  Sender: FDA-Public Use
  Company Number: US-MYLANLABS-2011S1003047

PATIENT
  Age: 48 Year
  Sex: Female
  Weight: 81.65 kg

DRUGS (9)
  1. TOPROL-XL [Concomitant]
  2. LORTAB [Concomitant]
  3. FENTANYL-100 [Suspect]
     Dosage: CHANGED Q72H
     Route: 062
     Dates: start: 20110209
  4. DAYQUIL [Concomitant]
  5. SIMVASTATIN [Concomitant]
  6. DUONEB [Concomitant]
  7. FENTANYL-100 [Suspect]
     Indication: BACK PAIN
     Dosage: CHANGED Q72H
     Route: 062
     Dates: start: 20080101, end: 20110208
  8. METFORMIN HCL [Concomitant]
  9. LISINOPRIL [Concomitant]

REACTIONS (3)
  - DRUG EFFECT INCREASED [None]
  - SOMNOLENCE [None]
  - VOMITING [None]
